FAERS Safety Report 16856767 (Version 1)
Quarter: 2019Q3

REPORT INFORMATION
  Report Type: Report from Study
  Country: US (occurrence: US)
  Receive Date: 20190926
  Receipt Date: 20190926
  Transmission Date: 20191005
  Serious: Yes (Hospitalization)
  Sender: FDA-Public Use
  Company Number: US-BAUSCH-BL-2019-054759

PATIENT
  Age: 51 Year
  Sex: Female

DRUGS (1)
  1. SILIQ [Suspect]
     Active Substance: BRODALUMAB
     Indication: PSORIASIS
     Dosage: 210 MG/1.5 ML
     Route: 058
     Dates: start: 20180418

REACTIONS (3)
  - Appendicectomy [Unknown]
  - Therapy cessation [Unknown]
  - Psoriasis [Unknown]

NARRATIVE: CASE EVENT DATE: 20190916
